FAERS Safety Report 7432076-1 (Version None)
Quarter: 2011Q2

REPORT INFORMATION
  Report Type: 
  Country: None (occurrence: None)
  Receive Date: 20110414
  Receipt Date: 20110401
  Transmission Date: 20111010
  Serious: Yes (Disabling, Other)
  Sender: FDA-Public Use
  Company Number: TRP_07551_2011

PATIENT
  Sex: Female
  Weight: 54.4316 kg

DRUGS (3)
  1. PEGASYS [Suspect]
     Indication: HEPATITIS C
     Dosage: DF
     Dates: start: 20100101, end: 20101027
  2. RIBAVIRIN [Suspect]
     Indication: HEPATITIS C
     Dosage: 1000 MG, DAILY (400/600) ORAL
     Route: 048
     Dates: start: 20100101, end: 20100913
  3. RIBASPHERE [Suspect]
     Indication: HEPATITIS A
     Dosage: 1000 MG, DAILY, ORAL
     Route: 048
     Dates: start: 20100914, end: 20101027

REACTIONS (26)
  - PAIN OF SKIN [None]
  - VISUAL IMPAIRMENT [None]
  - BLOOD BILIRUBIN INCREASED [None]
  - RED BLOOD CELL COUNT DECREASED [None]
  - MOOD ALTERED [None]
  - MALAISE [None]
  - BLOOD UREA DECREASED [None]
  - BILIRUBIN CONJUGATED INCREASED [None]
  - HYPOAESTHESIA [None]
  - VISION BLURRED [None]
  - HAEMOGLOBIN DECREASED [None]
  - DEPRESSION [None]
  - ASPARTATE AMINOTRANSFERASE INCREASED [None]
  - HAEMATOCRIT DECREASED [None]
  - PYREXIA [None]
  - ANXIETY [None]
  - DECREASED APPETITE [None]
  - WEIGHT DECREASED [None]
  - ALOPECIA [None]
  - FEELING ABNORMAL [None]
  - PLATELET COUNT DECREASED [None]
  - TOOTHACHE [None]
  - GINGIVAL HYPERPLASIA [None]
  - DISEASE RECURRENCE [None]
  - SKIN DISORDER [None]
  - BLOOD AMYLASE INCREASED [None]
